FAERS Safety Report 11596250 (Version 5)
Quarter: 2016Q2

REPORT INFORMATION
  Report Type: Report from Study
  Country: CA (occurrence: CA)
  Receive Date: 20151006
  Receipt Date: 20160606
  Transmission Date: 20160815
  Serious: Yes (Other)
  Sender: FDA-Public Use
  Company Number: CA-ROCHE-ITM201505IM016690

PATIENT
  Age: 74 Year
  Sex: Male
  Weight: 65.9 kg

DRUGS (16)
  1. ESBRIET [Suspect]
     Active Substance: PIRFENIDONE
     Indication: IDIOPATHIC PULMONARY FIBROSIS
     Route: 048
     Dates: start: 20150428
  2. CLOPIDOGREL [Concomitant]
     Active Substance: CLOPIDOGREL BISULFATE
  3. PANTOPRAZOLE [Concomitant]
     Active Substance: PANTOPRAZOLE SODIUM
  4. IRBESARTAN. [Concomitant]
     Active Substance: IRBESARTAN
  5. COENZYME Q10 [Concomitant]
     Active Substance: UBIDECARENONE
  6. COTYLENOL [Concomitant]
  7. ESBRIET [Suspect]
     Active Substance: PIRFENIDONE
     Route: 048
     Dates: start: 20150512, end: 201507
  8. SERRAPEPTASE [Concomitant]
     Active Substance: SERRAPEPTASE
  9. ESBRIET [Suspect]
     Active Substance: PIRFENIDONE
     Route: 048
     Dates: start: 201502
  10. CRESTOR [Concomitant]
     Active Substance: ROSUVASTATIN CALCIUM
  11. ASCORBIC ACID. [Concomitant]
     Active Substance: ASCORBIC ACID
  12. ESBRIET [Suspect]
     Active Substance: PIRFENIDONE
     Route: 048
     Dates: start: 20150714, end: 201508
  13. TECTA [Concomitant]
     Active Substance: PANTOPRAZOLE MAGNESIUM
  14. ESBRIET [Suspect]
     Active Substance: PIRFENIDONE
     Route: 048
     Dates: start: 20150505
  15. CLONAZEPAM. [Suspect]
     Active Substance: CLONAZEPAM
     Indication: PRODUCT USED FOR UNKNOWN INDICATION
     Route: 065
  16. ESTER-C (ASCORBATE CALCIUM) [Concomitant]

REACTIONS (17)
  - Blood pressure decreased [Recovering/Resolving]
  - Throat irritation [Unknown]
  - Asthenia [Unknown]
  - Malaise [Unknown]
  - Warm type haemolytic anaemia [Not Recovered/Not Resolved]
  - Dyspnoea [Unknown]
  - Dyspepsia [Not Recovered/Not Resolved]
  - Foreign body [Not Recovered/Not Resolved]
  - Decreased appetite [Recovered/Resolved]
  - Depression [Unknown]
  - Productive cough [Unknown]
  - Gastric disorder [Unknown]
  - Flatulence [Not Recovered/Not Resolved]
  - Abdominal discomfort [Unknown]
  - Pulmonary fibrosis [Unknown]
  - Cough [Recovering/Resolving]
  - Weight decreased [Unknown]

NARRATIVE: CASE EVENT DATE: 20150522
